FAERS Safety Report 5639914-3 (Version None)
Quarter: 2008Q1

REPORT INFORMATION
  Report Type: 
  Country: None (occurrence: None)
  Receive Date: 20080227
  Receipt Date: 20080227
  Transmission Date: 20080703
  Serious: Yes (Hospitalization)
  Sender: FDA-Public Use
  Company Number: None

PATIENT
  Age: 56 Year
  Sex: Male
  Weight: 97 kg

DRUGS (2)
  1. HEPARIN [Suspect]
     Indication: CORONARY ARTERIAL STENT INSERTION
     Dates: start: 20080105, end: 20080107
  2. ENOXAPARIN [Suspect]
     Indication: CORONARY ARTERIAL STENT INSERTION
     Dosage: 100MG BID SQ
     Route: 058
     Dates: start: 20080105, end: 20080107

REACTIONS (1)
  - HAEMORRHAGE [None]
